FAERS Safety Report 5900609-X (Version None)
Quarter: 2008Q3

REPORT INFORMATION
  Report Type: 
  Country: None (occurrence: None)
  Receive Date: 20080926
  Receipt Date: 20080916
  Transmission Date: 20090109
  Serious: Yes (Other)
  Sender: FDA-Public Use
  Company Number: CA-PFIZER INC-2008078120

PATIENT
  Sex: Male

DRUGS (1)
  1. CHANTIX [Suspect]
     Route: 048
     Dates: start: 20080724, end: 20080801

REACTIONS (3)
  - BIPOLAR I DISORDER [None]
  - MALAISE [None]
  - MOOD SWINGS [None]
